FAERS Safety Report 16033223 (Version 1)
Quarter: 2019Q1

REPORT INFORMATION
  Report Type: Spontaneous
  Country: GB (occurrence: GB)
  Receive Date: 20190305
  Receipt Date: 20190305
  Transmission Date: 20190418
  Serious: Yes (Life-Threatening, Hospitalization)
  Sender: FDA-Public Use
  Company Number: GB-TEVA-2019-GB-1018468

PATIENT
  Age: 47 Year
  Sex: Male
  Weight: 86 kg

DRUGS (1)
  1. NORTRIPTYLINE HYDROCHLORIDE. [Suspect]
     Active Substance: NORTRIPTYLINE HYDROCHLORIDE
     Indication: NECK PAIN
     Route: 048
     Dates: start: 20181214, end: 20190130

REACTIONS (1)
  - Acute myocardial infarction [Recovering/Resolving]

NARRATIVE: CASE EVENT DATE: 20190130
